FAERS Safety Report 24540736 (Version 1)
Quarter: 2024Q4

REPORT INFORMATION
  Report Type: Spontaneous
  Country: US (occurrence: US)
  Receive Date: 20241023
  Receipt Date: 20241023
  Transmission Date: 20250114
  Serious: Yes (Other)
  Sender: BRACCO
  Company Number: US-BRACCO-2023US05272

PATIENT
  Age: 60 Year
  Sex: Female

DRUGS (1)
  1. MULTIHANCE [Suspect]
     Active Substance: GADOBENATE DIMEGLUMINE
     Indication: Magnetic resonance imaging breast
     Dosage: UNK, SINGLE
     Route: 042
     Dates: start: 20230817, end: 20230817

REACTIONS (5)
  - Abdominal pain upper [Recovered/Resolved]
  - Retching [Recovered/Resolved]
  - Throat clearing [Recovered/Resolved]
  - Malaise [Recovered/Resolved]
  - Cough [Recovered/Resolved]

NARRATIVE: CASE EVENT DATE: 20230817
